FAERS Safety Report 9827590 (Version 1)
Quarter: 2014Q1

REPORT INFORMATION
  Report Type: Spontaneous
  Country: US (occurrence: US)
  Receive Date: 20140117
  Receipt Date: 20140117
  Transmission Date: 20141002
  Serious: No
  Sender: FDA-Public Use
  Company Number: US-BIOGENIDEC-2014BI003827

PATIENT
  Age: 55 Year
  Sex: Female
  Weight: 76 kg

DRUGS (17)
  1. TECFIDERA [Suspect]
     Indication: PRODUCT USED FOR UNKNOWN INDICATION
     Route: 048
  2. TECFIDERA [Suspect]
     Indication: PRODUCT USED FOR UNKNOWN INDICATION
     Route: 048
  3. SINGULAIR [Concomitant]
  4. ZOCOR [Concomitant]
  5. SYNTHROID [Concomitant]
  6. AMOXICILLIN [Concomitant]
  7. FLOVENT [Concomitant]
  8. PROZAC [Concomitant]
  9. SPIRIVA [Concomitant]
  10. LOSARTAN [Concomitant]
  11. FISH OIL [Concomitant]
  12. MULTI 50+ [Concomitant]
  13. SUPER B-COMPLEX [Concomitant]
  14. OMEGA 3 [Concomitant]
  15. ALPHA LIPOIC [Concomitant]
  16. NUVIGIL [Concomitant]
  17. PROBIOTIC [Concomitant]

REACTIONS (3)
  - Upper respiratory tract infection [Unknown]
  - Lethargy [Unknown]
  - Nausea [Unknown]
